FAERS Safety Report 23898148 (Version 1)
Quarter: 2024Q2

REPORT INFORMATION
  Report Type: Report from Study
  Country: US (occurrence: None)
  Receive Date: 20240524
  Receipt Date: 20240524
  Transmission Date: 20240716
  Serious: Yes (Other)
  Sender: FDA-Public Use
  Company Number: 2024A117057

PATIENT
  Sex: Female

DRUGS (1)
  1. WAINUA [Suspect]
     Active Substance: EPLONTERSEN
     Route: 058

REACTIONS (2)
  - Pleural effusion [Unknown]
  - Chest pain [Unknown]
